FAERS Safety Report 5938152-4 (Version None)
Quarter: 2008Q4

REPORT INFORMATION
  Report Type: 
  Country: None (occurrence: None)
  Receive Date: 20081031
  Receipt Date: 20081024
  Transmission Date: 20090506
  Serious: No
  Sender: FDA-Public Use
  Company Number: US-B.I. PHARMACEUTICALS,INC./RIDGEFIELD-2008-BP-16230BP

PATIENT
  Sex: Male

DRUGS (11)
  1. CATAPRES-TTS-1 [Suspect]
     Indication: HYPERTENSION
     Dosage: .2MG
     Route: 061
     Dates: start: 20080301
  2. ENALAPRIL MALEATE [Concomitant]
     Indication: HYPERTENSION
  3. COREG [Concomitant]
     Indication: HYPERTENSION
  4. TECKTURNA [Concomitant]
     Indication: HYPERTENSION
  5. PLAVIX [Concomitant]
  6. ASPIRIN [Concomitant]
  7. PROTONIX [Concomitant]
     Indication: DYSPEPSIA
  8. XANAX [Concomitant]
     Indication: BACK DISORDER
  9. XANAX [Concomitant]
     Indication: ARTHROPATHY
  10. VICODIN [Concomitant]
     Indication: BACK DISORDER
  11. VICODIN [Concomitant]
     Indication: ARTHROPATHY

REACTIONS (2)
  - APPLICATION SITE ERYTHEMA [None]
  - APPLICATION SITE PRURITUS [None]
